FAERS Safety Report 16145628 (Version 1)
Quarter: 2019Q2

REPORT INFORMATION
  Report Type: Spontaneous
  Country: US (occurrence: US)
  Receive Date: 20190227
  Receipt Date: 20190227
  Transmission Date: 20190711
  Serious: Yes (Hospitalization)
  Sender: FDA-Public Use
  Company Number: None

PATIENT
  Age: 72 Year
  Sex: Male

DRUGS (41)
  1. JANUVIA [Concomitant]
     Active Substance: SITAGLIPTIN PHOSPHATE
  2. AZATHOPRINE [Concomitant]
     Active Substance: AZATHIOPRINE
  3. TAMSULOSIN [Concomitant]
     Active Substance: TAMSULOSIN
  4. CLOTRIMAZOLE. [Concomitant]
     Active Substance: CLOTRIMAZOLE
  5. PRAVSTATIN [Concomitant]
  6. ZOLPIDEM [Concomitant]
     Active Substance: ZOLPIDEM\ZOLPIDEM TARTRATE
  7. VALGANCICLOVIR. [Concomitant]
     Active Substance: VALGANCICLOVIR
  8. MAGNESIUM-OX [Concomitant]
  9. PREDNISONE. [Concomitant]
     Active Substance: PREDNISONE
  10. ASPIRIN. [Concomitant]
     Active Substance: ASPIRIN
  11. ELIQUIS [Concomitant]
     Active Substance: APIXABAN
  12. ALBUTEROL. [Concomitant]
     Active Substance: ALBUTEROL
  13. LANTUS [Concomitant]
     Active Substance: INSULIN GLARGINE
  14. ATORVASTATIN [Concomitant]
     Active Substance: ATORVASTATIN
  15. ONE DAILY [Concomitant]
  16. SUCRALFATE. [Concomitant]
     Active Substance: SUCRALFATE
  17. TRACROLUMUS [Concomitant]
  18. IPRATROPIUM [Concomitant]
     Active Substance: IPRATROPIUM
  19. WARFARIN [Concomitant]
     Active Substance: WARFARIN
  20. CALCIU CITRATE + D3 [Concomitant]
  21. CHLORHEX GLU [Concomitant]
  22. SMZ-TMP [Concomitant]
     Active Substance: SULFAMETHOXAZOLE\TRIMETHOPRIM
  23. METOPROLOL TARTRATE. [Concomitant]
     Active Substance: METOPROLOL TARTRATE
  24. PROVENTIL [Concomitant]
     Active Substance: ALBUTEROL
  25. OMEPRAZOLE. [Concomitant]
     Active Substance: OMEPRAZOLE
  26. DEXILANT [Concomitant]
     Active Substance: DEXLANSOPRAZOLE
  27. FEROSUL [Concomitant]
  28. SIMVASTATIN. [Concomitant]
     Active Substance: SIMVASTATIN
  29. AZITHROMYCIN ANHYDROUS. [Concomitant]
     Active Substance: AZITHROMYCIN ANHYDROUS
  30. MONTELUKAST [Concomitant]
     Active Substance: MONTELUKAST SODIUM
  31. VIRTUSSIN AC [Concomitant]
     Active Substance: CODEINE PHOSPHATE\GUAIFENESIN
  32. POLYETH GLYC [Concomitant]
     Active Substance: POLYETHYLENE GLYCOLS
  33. C/ROSE HIPS [Concomitant]
  34. ESBRIET [Suspect]
     Active Substance: PIRFENIDONE
     Indication: IDIOPATHIC PULMONARY FIBROSIS
     Route: 048
     Dates: start: 20180613
  35. SYMBICORT [Concomitant]
     Active Substance: BUDESONIDE\FORMOTEROL FUMARATE DIHYDRATE
  36. TRIAMT/HCTZ [Concomitant]
     Active Substance: HYDROCHLOROTHIAZIDE\TRIAMTERENE
  37. LIDOCAINE. [Concomitant]
     Active Substance: LIDOCAINE
  38. SENNA [Concomitant]
     Active Substance: SENNA LEAF\SENNOSIDES\SENNOSIDES A AND B
  39. STOOL SOFTENER (DOCUSATE) [Concomitant]
     Active Substance: DOCUSATE
  40. CEFUROXIME. [Concomitant]
     Active Substance: CEFUROXIME
  41. BENZONATATE. [Concomitant]
     Active Substance: BENZONATATE

REACTIONS (1)
  - Lung transplant [None]

NARRATIVE: CASE EVENT DATE: 20190217
